FAERS Safety Report 25307180 (Version 1)
Quarter: 2025Q2

REPORT INFORMATION
  Report Type: Spontaneous
  Country: US (occurrence: None)
  Receive Date: 20250512
  Receipt Date: 20250512
  Transmission Date: 20250717
  Serious: No
  Sender: FDA-CTU
  Company Number: None

PATIENT

DRUGS (1)
  1. ALENDRONATE SODIUM [Suspect]
     Active Substance: ALENDRONATE SODIUM

REACTIONS (6)
  - Myalgia [None]
  - Gait disturbance [None]
  - Fall [None]
  - Hypoacusis [None]
  - Blindness [None]
  - Drug monitoring procedure not performed [None]
